FAERS Safety Report 5421974-6 (Version None)
Quarter: 2007Q3

REPORT INFORMATION
  Report Type: 
  Country: None (occurrence: None)
  Receive Date: 20070822
  Receipt Date: 20070814
  Transmission Date: 20080115
  Serious: Yes (Other)
  Sender: FDA-Public Use
  Company Number: PHBS2007NO13516

PATIENT
  Sex: Female

DRUGS (2)
  1. RITALIN [Suspect]
     Indication: ATTENTION DEFICIT/HYPERACTIVITY DISORDER
     Dosage: 20 MG, TID
     Dates: start: 20061229
  2. RITALIN [Suspect]
     Dosage: 10 MG, 5 TIMES EVERY TWO HOURS/DAY

REACTIONS (5)
  - ABNORMAL BEHAVIOUR [None]
  - ANGER [None]
  - EUPHORIC MOOD [None]
  - LOGORRHOEA [None]
  - SUICIDAL IDEATION [None]
